FAERS Safety Report 15377241 (Version 3)
Quarter: 2018Q4

REPORT INFORMATION
  Report Type: Spontaneous
  Country: US (occurrence: US)
  Receive Date: 20180913
  Receipt Date: 20181008
  Transmission Date: 20190204
  Serious: No
  Sender: FDA-Public Use
  Company Number: US-PFIZER INC-2018366705

PATIENT
  Age: 64 Year
  Sex: Female
  Weight: 97 kg

DRUGS (1)
  1. IBRANCE [Suspect]
     Active Substance: PALBOCICLIB
     Indication: BREAST CANCER METASTATIC
     Dosage: 125 MG, CYCLIC(1-21 Q 28 DAYS)/ D1-21 Q 28 DAYS
     Route: 048
     Dates: start: 20180828

REACTIONS (5)
  - Neoplasm progression [Not Recovered/Not Resolved]
  - Fatigue [Unknown]
  - Bone pain [Not Recovered/Not Resolved]
  - White blood cell count decreased [Unknown]
  - Gait disturbance [Recovering/Resolving]

NARRATIVE: CASE EVENT DATE: 2018
